FAERS Safety Report 12159462 (Version 1)
Quarter: 2016Q1

REPORT INFORMATION
  Report Type: Spontaneous
  Country: US (occurrence: None)
  Receive Date: 20160307
  Receipt Date: 20160307
  Transmission Date: 20160526
  Serious: No
  Sender: FDA-Public Use
  Company Number: None

PATIENT
  Age: 39 Year
  Sex: Female

DRUGS (1)
  1. TECFIDERA [Suspect]
     Active Substance: DIMETHYL FUMARATE
     Indication: MULTIPLE SCLEROSIS
     Dosage: 240MG (1 CAPSULE) TWICE DAILY BY MOUTH
     Route: 048
     Dates: start: 20160301

REACTIONS (2)
  - Paraesthesia [None]
  - Hypoaesthesia [None]

NARRATIVE: CASE EVENT DATE: 20160301
